FAERS Safety Report 7689032-8 (Version None)
Quarter: 2011Q3

REPORT INFORMATION
  Report Type: 
  Country: None (occurrence: None)
  Receive Date: 20110817
  Receipt Date: 20110810
  Transmission Date: 20111222
  Serious: Yes (Hospitalization)
  Sender: FDA-Public Use
  Company Number: US-ABBOTT-11P-163-0845351-00

PATIENT
  Sex: Male

DRUGS (2)
  1. CELEBREX [Concomitant]
     Indication: PRODUCT USED FOR UNKNOWN INDICATION
  2. HUMIRA [Suspect]
     Indication: RHEUMATOID ARTHRITIS
     Route: 058
     Dates: start: 20110510

REACTIONS (4)
  - PAIN IN EXTREMITY [None]
  - CHEST PAIN [None]
  - DYSPNOEA [None]
  - BLOOD PRESSURE INCREASED [None]
